FAERS Safety Report 5506347-X (Version None)
Quarter: 2007Q4

REPORT INFORMATION
  Report Type: 
  Country: None (occurrence: None)
  Receive Date: 20071101
  Receipt Date: 20070704
  Transmission Date: 20080405
  Serious: Yes (Life-Threatening, Hospitalization)
  Sender: FDA-Public Use
  Company Number: 2007BI013932

PATIENT
  Age: 22 Year
  Sex: Male

DRUGS (1)
  1. AVONEX [Suspect]
     Indication: MULTIPLE SCLEROSIS
     Dosage: 30 UG; QW; IM
     Route: 030
     Dates: start: 20070531, end: 20070627

REACTIONS (5)
  - ASTHMA [None]
  - LOWER LIMB FRACTURE [None]
  - SPINAL DISORDER [None]
  - SUICIDE ATTEMPT [None]
  - UPPER LIMB FRACTURE [None]
